FAERS Safety Report 8510045-8 (Version None)
Quarter: 2012Q3

REPORT INFORMATION
  Report Type: 
  Country: None (occurrence: None)
  Receive Date: 20120713
  Receipt Date: 20120706
  Transmission Date: 20120928
  Serious: Yes (Other)
  Sender: FDA-Public Use
  Company Number: US-FRI-1000036920

PATIENT
  Sex: Female

DRUGS (2)
  1. NAMENDA [Suspect]
     Dates: start: 20120101
  2. ARICEPT [Suspect]
     Dates: start: 20120101

REACTIONS (1)
  - HIP FRACTURE [None]
